FAERS Safety Report 6353536-0 (Version None)
Quarter: 2009Q3

REPORT INFORMATION
  Report Type: 
  Country: None (occurrence: None)
  Receive Date: 20090912
  Receipt Date: 20090622
  Transmission Date: 20100115
  Serious: No
  Sender: FDA-Public Use
  Company Number: US-ABBOTT-08P-163-0460238-00

PATIENT
  Sex: Female
  Weight: 63.56 kg

DRUGS (5)
  1. HUMIRA [Suspect]
     Indication: CROHN'S DISEASE
     Route: 050
     Dates: start: 20070101
  2. MERCAPTOPURINE [Concomitant]
     Indication: CROHN'S DISEASE
     Route: 048
     Dates: start: 20070101
  3. ESCITALOPRAM OXALATE [Concomitant]
     Indication: ANXIETY
     Route: 048
     Dates: start: 20080301
  4. ESCITALOPRAM OXALATE [Concomitant]
     Indication: ANTIDEPRESSANT THERAPY
  5. CYANOCOBALAMIN-TANNIN COMPLEX [Concomitant]
     Indication: INTESTINAL RESECTION
     Route: 050

REACTIONS (7)
  - CROHN'S DISEASE [None]
  - DRUG DELIVERY SYSTEM MALFUNCTION [None]
  - INCORRECT DOSE ADMINISTERED [None]
  - INJECTION SITE EXTRAVASATION [None]
  - INJECTION SITE PAIN [None]
  - INJECTION SITE PRURITUS [None]
  - INJECTION SITE URTICARIA [None]
